FAERS Safety Report 8078363-8 (Version None)
Quarter: 2012Q1

REPORT INFORMATION
  Report Type: 
  Country: None (occurrence: None)
  Receive Date: 20120123
  Receipt Date: 20120109
  Transmission Date: 20120608
  Serious: Yes (Life-Threatening, Hospitalization, Other)
  Sender: FDA-Public Use
  Company Number: 2012MA000438

PATIENT
  Sex: Male

DRUGS (33)
  1. DILANTIN [Concomitant]
  2. PROPOFOL [Concomitant]
  3. SODIUM PHOSPHATE [Concomitant]
  4. KLOR-CON [Concomitant]
  5. C???????? [Concomitant]
  6. CHLORIDE [Concomitant]
  7. PNEUMOCOCCAL VACCINE [Concomitant]
  8. LOPRESSOR [Concomitant]
  9. APAP TAB [Concomitant]
  10. DSW [Concomitant]
  11. VECURONIUM BROMIDE [Concomitant]
  12. DIGOXIN [Suspect]
     Indication: CARDIAC DISORDER
     Dosage: 0.25 MG; QD; PO
     Route: 048
     Dates: start: 20071101, end: 20080827
  13. PRINIVIL [Concomitant]
  14. SODIUM CHLORIDE [Concomitant]
  15. AMOXICILLIN [Concomitant]
  16. ASPIRIN [Concomitant]
  17. CARDIZEM [Concomitant]
  18. POTASSIUM [Concomitant]
  19. GAVISCON [Concomitant]
  20. ATIVAN [Concomitant]
  21. COUMADIN [Concomitant]
  22. ASPIRIN [Concomitant]
  23. LASIX [Concomitant]
  24. PANTOPRAZOLE [Concomitant]
  25. INFLUENZA VACCINE [Concomitant]
  26. LAMICTAL [Concomitant]
  27. ??? [Concomitant]
  28. LANOLIN [Concomitant]
  29. ZYLOPRIN [Concomitant]
  30. MAGNESIUM SULFATE [Concomitant]
  31. ALLOPURINOL [Concomitant]
  32. DILTIAZEM HCL [Concomitant]
  33. KEPPRA [Concomitant]

REACTIONS (24)
  - GOUTY ARTHRITIS [None]
  - GLUCOSE TOLERANCE IMPAIRED [None]
  - GRAND MAL CONVULSION [None]
  - RASH [None]
  - WHITE BLOOD CELL COUNT DECREASED [None]
  - BLOOD GLUCOSE INCREASED [None]
  - STATUS EPILEPTICUS [None]
  - ATRIAL FIBRILLATION [None]
  - MITRAL VALVE DISEASE [None]
  - PULMONARY HYPERTENSION [None]
  - RENAL FAILURE [None]
  - INTERNATIONAL NORMALISED RATIO INCREASED [None]
  - COORDINATION ABNORMAL [None]
  - RENAL FAILURE CHRONIC [None]
  - VISUAL IMPAIRMENT [None]
  - ARRHYTHMIA [None]
  - HYPOTENSION [None]
  - AORTIC VALVE SCLEROSIS [None]
  - AORTIC VALVE STENOSIS [None]
  - CONVULSION [None]
  - CEREBROVASCULAR ACCIDENT [None]
  - CARDIAC ENZYMES INCREASED [None]
  - PERICARDIAL EFFUSION [None]
  - AORTIC VALVE INCOMPETENCE [None]
